FAERS Safety Report 15044803 (Version 2)
Quarter: 2018Q3

REPORT INFORMATION
  Report Type: Spontaneous
  Country: US (occurrence: US)
  Receive Date: 20180621
  Receipt Date: 20180807
  Transmission Date: 20181010
  Serious: Yes (Other)
  Sender: FDA-Public Use
  Company Number: PHEH2018US023910

PATIENT
  Age: 84 Year
  Sex: Female

DRUGS (2)
  1. AFINITOR [Suspect]
     Active Substance: EVEROLIMUS
     Dosage: 5 MG, QD
     Route: 048
  2. AFINITOR [Suspect]
     Active Substance: EVEROLIMUS
     Indication: SALIVARY GLAND CANCER
     Dosage: 7.5 MG, QD
     Route: 048
     Dates: start: 201803

REACTIONS (8)
  - Platelet count decreased [Unknown]
  - Off label use [Unknown]
  - Weight decreased [Unknown]
  - Blood creatinine decreased [Unknown]
  - Neoplasm malignant [Unknown]
  - Movement disorder [Unknown]
  - Blood urea decreased [Unknown]
  - Decreased appetite [Unknown]

NARRATIVE: CASE EVENT DATE: 201806
